FAERS Safety Report 5876019-0 (Version None)
Quarter: 2008Q3

REPORT INFORMATION
  Report Type: 
  Country: None (occurrence: None)
  Receive Date: 20080905
  Receipt Date: 20080819
  Transmission Date: 20090109
  Serious: Yes (Other)
  Sender: FDA-Public Use
  Company Number: ENTC2008-0254

PATIENT
  Age: 79 Year
  Sex: Female

DRUGS (2)
  1. STALEVO 100 [Suspect]
     Indication: PARKINSON'S DISEASE
     Dosage: 6 TABLETS PERDAY, 50/12.5/200MG ORAL; 3 TABLETS,  50/12.5/200MG ORAL
     Route: 048
     Dates: end: 20080809
  2. STALEVO 100 [Suspect]
     Indication: PARKINSON'S DISEASE
     Dosage: 6 TABLETS PERDAY, 50/12.5/200MG ORAL; 3 TABLETS,  50/12.5/200MG ORAL
     Route: 048
     Dates: start: 20080810

REACTIONS (1)
  - DELIRIUM [None]
